FAERS Safety Report 6873359-3 (Version None)
Quarter: 2010Q3

REPORT INFORMATION
  Report Type: 
  Country: None (occurrence: None)
  Receive Date: 20100723
  Receipt Date: 20090402
  Transmission Date: 20110219
  Serious: No
  Sender: FDA-Public Use
  Company Number: US-PFIZER INC-2008158038

PATIENT
  Sex: Female
  Weight: 56.699 kg

DRUGS (1)
  1. CHANTIX [Suspect]
     Indication: SMOKING CESSATION THERAPY
     Dosage: 0.5 MG, 1X/DAY
     Dates: start: 20081215, end: 20081215

REACTIONS (6)
  - AGITATION [None]
  - CONFUSIONAL STATE [None]
  - FORMICATION [None]
  - HYPERHIDROSIS [None]
  - MENTAL IMPAIRMENT [None]
  - PALPITATIONS [None]
